FAERS Safety Report 5326015-7 (Version None)
Quarter: 2007Q2

REPORT INFORMATION
  Report Type: 
  Country: None (occurrence: None)
  Receive Date: 20070516
  Receipt Date: 20070504
  Transmission Date: 20071010
  Serious: Yes (Hospitalization)
  Sender: FDA-Public Use
  Company Number: FR-NOVOPROD-263433

PATIENT
  Age: 89 Year
  Sex: Female
  Weight: 50 kg

DRUGS (3)
  1. INSULATARD FLEXPEN [Suspect]
     Indication: INSULIN-REQUIRING TYPE II DIABETES MELLITUS
     Dosage: UNK, UNK
     Route: 058
     Dates: start: 20061115, end: 20070115
  2. PREVISCAN                          /00789001/ [Suspect]
     Indication: ATRIAL FIBRILLATION
     Route: 048
     Dates: start: 20060612, end: 20070115
  3. RISPERDAL [Suspect]
     Indication: ABNORMAL BEHAVIOUR
     Dosage: 1 MG, QD
     Route: 048
     Dates: start: 20061114, end: 20070312

REACTIONS (2)
  - ECZEMA [None]
  - TOXIC SKIN ERUPTION [None]
